FAERS Safety Report 9764492 (Version 1)
Quarter: 2013Q4

REPORT INFORMATION
  Report Type: Spontaneous
  Country: US (occurrence: US)
  Receive Date: 20131217
  Receipt Date: 20131217
  Transmission Date: 20140711
  Serious: Yes (Other)
  Sender: FDA-Public Use
  Company Number: US-ROCHE-1314283

PATIENT
  Sex: Female

DRUGS (1)
  1. KADCYLA [Suspect]
     Indication: BREAST CANCER METASTATIC
     Route: 065
     Dates: start: 201209

REACTIONS (3)
  - Venous injury [Unknown]
  - Portal vein dilatation [Unknown]
  - Inflammation [Unknown]
